FAERS Safety Report 6788801-6 (Version None)
Quarter: 2010Q2

REPORT INFORMATION
  Report Type: 
  Country: None (occurrence: None)
  Receive Date: 20100623
  Receipt Date: 20080602
  Transmission Date: 20101027
  Serious: No
  Sender: FDA-Public Use
  Company Number: US-PFIZER INC-2008036129

PATIENT
  Sex: Female

DRUGS (6)
  1. GEODON [Suspect]
     Indication: BIPOLAR DISORDER
     Route: 048
     Dates: start: 20070101
  2. GEODON [Suspect]
     Indication: PSYCHOTIC DISORDER
  3. LAMICTAL [Suspect]
  4. ZOLOFT [Concomitant]
  5. COGENTIN [Concomitant]
  6. TRAZODONE HYDROCHLORIDE [Concomitant]
     Dosage: 50-200MG

REACTIONS (1)
  - MOUTH ULCERATION [None]
